FAERS Safety Report 7325141-0 (Version None)
Quarter: 2011Q1

REPORT INFORMATION
  Report Type: 
  Country: None (occurrence: None)
  Receive Date: 20110302
  Receipt Date: 20110222
  Transmission Date: 20110831
  Serious: Yes (Hospitalization)
  Sender: FDA-Public Use
  Company Number: FR-BRACCO-000550

PATIENT
  Sex: Female

DRUGS (2)
  1. MULTIHANCE [Suspect]
     Indication: INTERMITTENT CLAUDICATION
     Dosage: EXPIRY DATES: S0P101A (15 ML): FEB-2013, S0P107G (20 ML): JUL-2013
     Dates: start: 20110201, end: 20110201
  2. MULTIHANCE [Suspect]
     Indication: NUCLEAR MAGNETIC RESONANCE IMAGING
     Dosage: EXPIRY DATES: S0P101A (15 ML): FEB-2013, S0P107G (20 ML): JUL-2013
     Dates: start: 20110201, end: 20110201

REACTIONS (3)
  - DYSPNOEA [None]
  - ERYTHEMA [None]
  - BLOOD PRESSURE DECREASED [None]
